FAERS Safety Report 6904267-7 (Version None)
Quarter: 2010Q3

REPORT INFORMATION
  Report Type: 
  Country: None (occurrence: None)
  Receive Date: 20100804
  Receipt Date: 20090420
  Transmission Date: 20110219
  Serious: No
  Sender: FDA-Public Use
  Company Number: US-PFIZER INC-2009176127

PATIENT
  Sex: Female
  Weight: 75.283 kg

DRUGS (5)
  1. LYRICA [Suspect]
     Indication: FIBROMYALGIA
     Dosage: 50 MG, 1X/DAY
     Route: 048
     Dates: start: 20090129, end: 20090315
  2. PRILOSEC [Concomitant]
     Dosage: 20 MG, 1X/DAY
  3. OMEPRAZOLE [Concomitant]
     Dosage: 20 MG, UNK
  4. GLUCOSAMINE SULFATE [Concomitant]
  5. LOVAZA [Concomitant]

REACTIONS (4)
  - BLOOD CHOLESTEROL INCREASED [None]
  - HIGH DENSITY LIPOPROTEIN INCREASED [None]
  - LOW DENSITY LIPOPROTEIN INCREASED [None]
  - WEIGHT INCREASED [None]
